FAERS Safety Report 23204784 (Version 1)
Quarter: 2023Q4

REPORT INFORMATION
  Report Type: Spontaneous
  Country: CN (occurrence: CN)
  Receive Date: 20231120
  Receipt Date: 20231120
  Transmission Date: 20240110
  Serious: Yes (Other)
  Sender: FDA-Public Use
  Company Number: CN-BAYER-2023A165521

PATIENT
  Age: 38 Year
  Sex: Female
  Weight: 61 kg

DRUGS (3)
  1. GADOBUTROL [Suspect]
     Active Substance: GADOBUTROL
     Indication: Magnetic resonance imaging abdominal
     Dosage: 15 ML, ONCE
     Route: 042
     Dates: start: 20230630, end: 20230630
  2. GADOBUTROL [Suspect]
     Active Substance: GADOBUTROL
     Indication: Interventional procedure
     Dosage: UNK
     Dates: start: 20230703, end: 20230703
  3. GADOBUTROL [Suspect]
     Active Substance: GADOBUTROL
     Indication: Magnetic resonance imaging head

REACTIONS (4)
  - Blood pressure increased [Recovering/Resolving]
  - Pruritus [Recovered/Resolved]
  - Dyspnoea [Recovered/Resolved]
  - Headache [Recovering/Resolving]

NARRATIVE: CASE EVENT DATE: 20230630
